FAERS Safety Report 15762503 (Version 2)
Quarter: 2019Q2

REPORT INFORMATION
  Report Type: Spontaneous
  Country: PT (occurrence: PT)
  Receive Date: 20181226
  Receipt Date: 20190423
  Transmission Date: 20190711
  Serious: Yes (Hospitalization)
  Sender: FDA-Public Use
  Company Number: PT-MYLANLABS-2018M1095148

PATIENT
  Age: 66 Year
  Sex: Female

DRUGS (6)
  1. OLMESARTAN MEDOXOMIL. [Suspect]
     Active Substance: OLMESARTAN MEDOXOMIL
     Indication: HYPERTENSION
     Dosage: UNK
     Route: 065
  2. HYDROCHLOROTHIAZIDE. [Suspect]
     Active Substance: HYDROCHLOROTHIAZIDE
     Indication: HYPERTENSION
     Dosage: UNK
     Route: 065
  3. METRONIDAZOLE. [Concomitant]
     Active Substance: METRONIDAZOLE
     Indication: DIARRHOEA
     Dosage: UNK
     Route: 065
  4. ALBENDAZOLE. [Concomitant]
     Active Substance: ALBENDAZOLE
     Indication: DIARRHOEA
     Dosage: UNK
     Route: 065
  5. METRONIDAZOLE. [Concomitant]
     Active Substance: METRONIDAZOLE
     Indication: DEHYDRATION
  6. ALBENDAZOLE. [Concomitant]
     Active Substance: ALBENDAZOLE
     Indication: DEHYDRATION

REACTIONS (5)
  - Renal impairment [Unknown]
  - Hypokalaemia [Unknown]
  - Enterocolitis [Recovering/Resolving]
  - Normochromic normocytic anaemia [Unknown]
  - Sprue-like enteropathy [Recovering/Resolving]
